FAERS Safety Report 21304318 (Version 1)
Quarter: 2022Q3

REPORT INFORMATION
  Report Type: Spontaneous
  Country: US (occurrence: None)
  Receive Date: 20220907
  Receipt Date: 20220907
  Transmission Date: 20221027
  Serious: No
  Sender: FDA-Public Use
  Company Number: US-ARIS GLOBAL-202107-1261

PATIENT
  Sex: Female

DRUGS (4)
  1. OXERVATE [Suspect]
     Active Substance: CENEGERMIN-BKBJ
     Indication: Neurotrophic keratopathy
     Route: 047
     Dates: start: 20210621
  2. OXERVATE [Suspect]
     Active Substance: CENEGERMIN-BKBJ
     Indication: Corneal disorder
  3. ACTHAR [Concomitant]
     Active Substance: CORTICOTROPIN
     Dosage: 80 UNIT/ML VIAL
  4. REFRESH CLASSIC [Concomitant]
     Active Substance: POLYVINYL ALCOHOL\POVIDONE

REACTIONS (3)
  - Photophobia [Unknown]
  - Periorbital pain [Unknown]
  - Swelling of eyelid [Unknown]
